FAERS Safety Report 13682620 (Version 1)
Quarter: 2017Q2

REPORT INFORMATION
  Report Type: Spontaneous
  Country: IT (occurrence: IT)
  Receive Date: 20170623
  Receipt Date: 20170623
  Transmission Date: 20170830
  Serious: Yes (Other)
  Sender: FDA-Public Use
  Company Number: IT-AMGEN-ITASP2017094243

PATIENT
  Age: 66 Year
  Sex: Male

DRUGS (3)
  1. ITRACONAZOLE. [Concomitant]
     Active Substance: ITRACONAZOLE
     Indication: ANTIFUNGAL PROPHYLAXIS
     Dosage: UNK
     Dates: start: 20161230, end: 20170101
  2. BLINCYTO [Suspect]
     Active Substance: BLINATUMOMAB
     Indication: SALVAGE THERAPY
     Dosage: 9 MUG, QD
     Route: 042
  3. LEVETIRACETAM. [Concomitant]
     Active Substance: LEVETIRACETAM
     Indication: EPILEPSY
     Dosage: 500 MG, UNK
     Route: 048

REACTIONS (1)
  - Hepatic failure [Recovering/Resolving]
